FAERS Safety Report 4513537-1 (Version None)
Quarter: 2004Q4

REPORT INFORMATION
  Report Type: 
  Country: None (occurrence: None)
  Receive Date: 20041124
  Receipt Date: 20010131
  Transmission Date: 20050328
  Serious: Yes (Hospitalization)
  Sender: FDA-Public Use
  Company Number: E125001

PATIENT
  Age: 56 Year
  Sex: Female

DRUGS (7)
  1. OXALIPLATIN - SOLUTION - 50 MG/M2 [Suspect]
     Indication: OESOPHAGEAL CANCER METASTATIC
     Dosage: 50 MG/M2 Q2W, INTRAVENOUS NOS
     Route: 042
     Dates: start: 20010122, end: 20010122
  2. FLUOROURACIL [Suspect]
     Dosage: 300 MG/M2 DAY IV BOLUS THEN 400 MG/M2/DAY IV CONTINUOUS INFUSION Q2W, INTRAVENOUS NOS
     Route: 042
     Dates: start: 20010122, end: 20010123
  3. LEUCOVORIN CALCIUM [Suspect]
     Dosage: 200 MG/M2 Q2W INTRAVENOUS NOS
     Route: 042
     Dates: start: 20010122, end: 20010123
  4. OMEPRAZOLE [Concomitant]
  5. MUTEZA (OXETACAINE) [Concomitant]
  6. ZOCOR [Concomitant]
  7. MONOTILDIEM (DILTIAZEM HCL) [Concomitant]

REACTIONS (4)
  - MUCOSAL INFLAMMATION [None]
  - OESOPHAGITIS [None]
  - PHLEBITIS [None]
  - STOMATITIS [None]
